FAERS Safety Report 10523393 (Version 12)
Quarter: 2015Q4

REPORT INFORMATION
  Report Type: Report from Study
  Country: US (occurrence: US)
  Receive Date: 20141016
  Receipt Date: 20151125
  Transmission Date: 20160304
  Serious: Yes (Hospitalization, Other)
  Sender: FDA-Public Use
  Company Number: US-ALEXION-A201403983

PATIENT
  Sex: Male

DRUGS (4)
  1. IRON [Suspect]
     Active Substance: IRON
     Indication: PRODUCT USED FOR UNKNOWN INDICATION
     Route: 042
  2. SOLIRIS [Suspect]
     Active Substance: ECULIZUMAB
     Indication: PAROXYSMAL NOCTURNAL HAEMOGLOBINURIA
     Dosage: UNK
     Route: 042
     Dates: start: 201410
  3. DIOVAN [Concomitant]
     Active Substance: VALSARTAN
     Indication: PRODUCT USED FOR UNKNOWN INDICATION
     Route: 065
  4. SOLIRIS [Suspect]
     Active Substance: ECULIZUMAB
     Dosage: 900 MG, Q2W
     Route: 042

REACTIONS (19)
  - Chest injury [Unknown]
  - Anxiety [Unknown]
  - Arterial stenosis [Not Recovered/Not Resolved]
  - Procedural haemorrhage [Unknown]
  - White blood cell count abnormal [Unknown]
  - Headache [Recovered/Resolved]
  - Feeling abnormal [Unknown]
  - Peripheral vascular disorder [Not Recovered/Not Resolved]
  - Haemoglobin decreased [Unknown]
  - Blood iron abnormal [Unknown]
  - Pain in extremity [Unknown]
  - Haematocrit decreased [Unknown]
  - Pain in extremity [Unknown]
  - Red blood cell count decreased [Unknown]
  - Platelet count decreased [Recovered/Resolved]
  - Reticulocyte count increased [Unknown]
  - Herpes zoster [Unknown]
  - Serum ferritin increased [Unknown]
  - Nausea [Recovered/Resolved]

NARRATIVE: CASE EVENT DATE: 20141103
